FAERS Safety Report 18006550 (Version 1)
Quarter: 2020Q3

REPORT INFORMATION
  Report Type: Spontaneous
  Country: US (occurrence: US)
  Receive Date: 20200710
  Receipt Date: 20200710
  Transmission Date: 20201103
  Serious: Yes (Hospitalization)
  Sender: FDA-Public Use
  Company Number: None

PATIENT
  Age: 61 Year
  Sex: Female
  Weight: 64.8 kg

DRUGS (2)
  1. CISPLATIN. [Suspect]
     Active Substance: CISPLATIN
     Dates: end: 20200622
  2. CISPLATIN. [Suspect]
     Active Substance: CISPLATIN

REACTIONS (8)
  - Lymphocyte count decreased [None]
  - Hypokalaemia [None]
  - Febrile neutropenia [None]
  - Mucosal inflammation [None]
  - Oropharyngeal pain [None]
  - Hypophagia [None]
  - Nausea [None]
  - White blood cell count decreased [None]

NARRATIVE: CASE EVENT DATE: 20190628
